FAERS Safety Report 6265152-X (Version None)
Quarter: 2009Q3

REPORT INFORMATION
  Report Type: 
  Country: None (occurrence: None)
  Receive Date: 20090709
  Receipt Date: 20090709
  Transmission Date: 20100115
  Serious: No
  Sender: FDA-Public Use
  Company Number: None

PATIENT
  Age: 68 Year
  Sex: Female
  Weight: 88.905 kg

DRUGS (3)
  1. ARICEPT [Suspect]
     Indication: ADVERSE REACTION
     Dosage: 10 MG EVERY DAY
  2. DICLOFENAC [Concomitant]
  3. TRAMADOL HCL [Concomitant]

REACTIONS (1)
  - CONVULSION [None]
